FAERS Safety Report 4284030-9 (Version None)
Quarter: 2004Q1

REPORT INFORMATION
  Report Type: 
  Country: None (occurrence: None)
  Receive Date: 20040130
  Receipt Date: 20040121
  Transmission Date: 20041129
  Serious: Yes (Hospitalization)
  Sender: FDA-Public Use
  Company Number: 001-0981-M0105081

PATIENT
  Age: 60 Year
  Sex: Male
  Weight: 73.0291 kg

DRUGS (1)
  1. LIPITOR [Suspect]
     Indication: BLOOD CHOLESTEROL INCREASED
     Dosage: 10 MG DAILY, ORAL
     Route: 048
     Dates: start: 20000101

REACTIONS (14)
  - ARTHRALGIA [None]
  - ASTHENIA [None]
  - BLOOD TRIGLYCERIDES ABNORMAL [None]
  - BREAST MASS [None]
  - BREAST TENDERNESS [None]
  - CHEST PAIN [None]
  - CONDUCTION DISORDER [None]
  - DRUG INEFFECTIVE [None]
  - HEART RATE INCREASED [None]
  - HEART RATE IRREGULAR [None]
  - HYPERTROPHY BREAST [None]
  - INFLUENZA LIKE ILLNESS [None]
  - MYALGIA [None]
  - PYREXIA [None]
